FAERS Safety Report 6844294-1 (Version None)
Quarter: 2010Q3

REPORT INFORMATION
  Report Type: 
  Country: None (occurrence: None)
  Receive Date: 20100715
  Receipt Date: 20100707
  Transmission Date: 20110219
  Serious: Yes (Hospitalization, Other)
  Sender: FDA-Public Use
  Company Number: US-ROCHE-712316

PATIENT
  Sex: Male

DRUGS (2)
  1. PEGINTERFERON ALFA-2A [Suspect]
     Indication: HEPATITIS C
     Dosage: FORM: PRE-FILLED SYRINGE (PFS)
     Route: 065
     Dates: start: 20100510
  2. RIBAVIRIN [Suspect]
     Indication: HEPATITIS C
     Route: 065
     Dates: start: 20100510

REACTIONS (6)
  - CHOLELITHIASIS [None]
  - DEHYDRATION [None]
  - DYSSTASIA [None]
  - HEPATIC CIRRHOSIS [None]
  - NAUSEA [None]
  - VOMITING [None]
